FAERS Safety Report 7874745-5 (Version None)
Quarter: 2011Q4

REPORT INFORMATION
  Report Type: 
  Country: None (occurrence: None)
  Receive Date: 20111031
  Receipt Date: 20111026
  Transmission Date: 20120403
  Serious: No
  Sender: FDA-Public Use
  Company Number: US-PFIZER INC-2011261631

PATIENT
  Age: 85 Year
  Sex: Female

DRUGS (3)
  1. PREMARIN [Suspect]
     Indication: OFF LABEL USE
     Dosage: UNK
     Route: 067
     Dates: start: 20110824
  2. PREMARIN [Suspect]
     Indication: URINARY INCONTINENCE
  3. TRIAMTERENE AND HYDROCHLOROTHIAZIDE [Concomitant]
     Indication: HYPERTENSION
     Dosage: 25/37.5 MG, 1X/DAY

REACTIONS (3)
  - VAGINAL INFECTION [None]
  - VULVOVAGINAL BURNING SENSATION [None]
  - DRUG INEFFECTIVE FOR UNAPPROVED INDICATION [None]
